FAERS Safety Report 8078288-8 (Version None)
Quarter: 2012Q1

REPORT INFORMATION
  Report Type: 
  Country: None (occurrence: None)
  Receive Date: 20120127
  Receipt Date: 20110121
  Transmission Date: 20120608
  Serious: No
  Sender: FDA-Public Use
  Company Number: US-ABBOTT-09P-163-0583886-00

PATIENT
  Sex: Female

DRUGS (9)
  1. HUMIRA [Suspect]
  2. METHOTREXATE [Concomitant]
     Indication: PRODUCT USED FOR UNKNOWN INDICATION
  3. HUMIRA [Suspect]
     Indication: RHEUMATOID ARTHRITIS
     Dates: start: 20070930
  4. HUMIRA [Suspect]
  5. HUMIRA [Suspect]
     Dates: start: 20110114
  6. EXTRA STRENGTH TYLENOL [Concomitant]
     Indication: PAIN
  7. PREDNISONE [Concomitant]
     Indication: PRODUCT USED FOR UNKNOWN INDICATION
     Dosage: 5MG DAILY IF NEEDED
  8. HUMIRA [Suspect]
     Indication: RHEUMATOID ARTHRITIS
  9. HUMIRA [Suspect]

REACTIONS (6)
  - PAIN [None]
  - RHEUMATOID ARTHRITIS [None]
  - UPPER RESPIRATORY TRACT CONGESTION [None]
  - DRUG DOSE OMISSION [None]
  - OROPHARYNGEAL PAIN [None]
  - DRUG EFFECT DECREASED [None]
